FAERS Safety Report 5081957-5 (Version None)
Quarter: 2006Q3

REPORT INFORMATION
  Report Type: 
  Country: None (occurrence: None)
  Receive Date: 20060811
  Receipt Date: 20060808
  Transmission Date: 20061208
  Serious: Yes (Other)
  Sender: FDA-Public Use
  Company Number: 2006JP002628

PATIENT
  Sex: Female

DRUGS (1)
  1. VESICARE [Suspect]
     Dosage: 2.5 MG, ORAL
     Route: 048
     Dates: end: 20060701

REACTIONS (4)
  - ANGINA PECTORIS [None]
  - FATIGUE [None]
  - NERVOUSNESS [None]
  - PALPITATIONS [None]
